FAERS Safety Report 4616333-X (Version None)
Quarter: 2005Q1

REPORT INFORMATION
  Report Type: 
  Country: None (occurrence: None)
  Receive Date: 20050321
  Receipt Date: 20050307
  Transmission Date: 20050727
  Serious: Yes (Other)
  Sender: FDA-Public Use
  Company Number: 2005032949

PATIENT
  Age: 65 Year
  Sex: Female
  Weight: 90.7194 kg

DRUGS (6)
  1. DETROL LA [Suspect]
     Indication: HYPERTONIC BLADDER
     Dosage: 4 MG (4 MG, 1 IN 1 D), ORAL
     Route: 048
     Dates: start: 20041222, end: 20050201
  2. DETROL LA [Suspect]
     Indication: HYPERTONIC BLADDER
     Dosage: 4 MG (4 MG, 1 IN 1 D), ORAL
     Route: 048
     Dates: start: 20040211
  3. BEE POLLEN (BEE POLLEN) [Suspect]
     Indication: ILL-DEFINED DISORDER
     Dosage: ORAL
     Route: 048
     Dates: start: 20050201
  4. CHELATION THERAPY (CHELATION THERAPY) [Suspect]
     Indication: ILL-DEFINED DISORDER
     Dates: start: 20040201
  5. HERBAL PREPARATION (HERBAL PREPARATION) [Concomitant]
  6. POTASSIUM ACETATE [Concomitant]

REACTIONS (7)
  - BLISTER [None]
  - DRUG INTERACTION [None]
  - EYE SWELLING [None]
  - INSOMNIA [None]
  - OROPHARYNGEAL SWELLING [None]
  - PRURITUS [None]
  - RASH [None]
